FAERS Safety Report 8824757 (Version 1)
Quarter: 2012Q4

REPORT INFORMATION
  Report Type: Report from Study
  Country: FR (occurrence: FR)
  Receive Date: 20121004
  Receipt Date: 20121004
  Transmission Date: 20130627
  Serious: Yes (Death, Other)
  Sender: FDA-Public Use
  Company Number: FR-PFIZER INC-2012241460

PATIENT
  Age: 4 Year
  Sex: Male
  Weight: 12 kg

DRUGS (4)
  1. CRIZOTINIB [Suspect]
     Indication: NEUROBLASTOMA
     Dosage: 160 mg, 2x/day
     Route: 048
     Dates: start: 20120906
  2. MORPHINE [Concomitant]
     Indication: ANALGESIC THERAPY
     Dosage: UNK
     Route: 042
     Dates: start: 20120816
  3. NEURONTIN [Concomitant]
     Indication: ANALGESIC THERAPY
     Dosage: UNK
     Route: 048
     Dates: start: 20120816
  4. CELEBREX [Concomitant]
     Indication: ANALGESIC THERAPY
     Dosage: UNK
     Route: 048
     Dates: start: 20120807

REACTIONS (3)
  - Disease progression [Fatal]
  - Neuroblastoma [Fatal]
  - Respiratory distress [Not Recovered/Not Resolved]
